FAERS Safety Report 21253722 (Version 2)
Quarter: 2022Q3

REPORT INFORMATION
  Report Type: Spontaneous
  Country: US (occurrence: US)
  Receive Date: 20220825
  Receipt Date: 20220920
  Transmission Date: 20221027
  Serious: Yes (Hospitalization)
  Sender: FDA-Public Use
  Company Number: US-PFIZER INC-202201087227

PATIENT
  Age: 76 Year
  Sex: Female
  Weight: 60.317 kg

DRUGS (6)
  1. PAXLOVID [Suspect]
     Active Substance: NIRMATRELVIR\RITONAVIR
     Indication: COVID-19 treatment
     Dosage: UNK, 2X/DAY
     Dates: start: 20220821, end: 202208
  2. SPIRONOLACTONE [Suspect]
     Active Substance: SPIRONOLACTONE
     Indication: Pulmonary sarcoidosis
     Dosage: 25 MG, 1X/DAY
     Dates: start: 201508
  3. LEVOTHYROXINE SODIUM [Suspect]
     Active Substance: LEVOTHYROXINE SODIUM
     Dosage: 100 UG, (ONCE DAILY 6X WEEK)
     Dates: start: 198403
  4. TORSEMIDE [Suspect]
     Active Substance: TORSEMIDE
     Indication: Pulmonary sarcoidosis
     Dosage: 20 MG, 1X/DAY
     Dates: start: 201508
  5. ROSUVASTATIN [Concomitant]
     Active Substance: ROSUVASTATIN
     Dosage: UNK
     Dates: end: 20220820
  6. MINERALS\VITAMINS [Concomitant]
     Active Substance: MINERALS\VITAMINS
     Dosage: UNK
     Dates: end: 20220820

REACTIONS (7)
  - Malaise [Unknown]
  - Dysgeusia [Recovered/Resolved]
  - Cough [Unknown]
  - Sleep disorder [Unknown]
  - Feeling abnormal [Unknown]
  - Body temperature increased [Unknown]
  - Dry mouth [Unknown]

NARRATIVE: CASE EVENT DATE: 20220821
